FAERS Safety Report 17164443 (Version 1)
Quarter: 2019Q4

REPORT INFORMATION
  Report Type: Spontaneous
  Country: IT (occurrence: IT)
  Receive Date: 20191217
  Receipt Date: 20191217
  Transmission Date: 20200122
  Serious: Yes (Other)
  Sender: FDA-Public Use
  Company Number: IT-CELLTRION INC.-2019IT025797

PATIENT

DRUGS (12)
  1. RITUXIMAB (UNKNOWN) [Suspect]
     Active Substance: RITUXIMAB
     Dosage: 1400 MG/M ONCE EVERY 2 MONTHS
     Route: 058
  2. RITUXIMAB (UNKNOWN) [Suspect]
     Active Substance: RITUXIMAB
     Dosage: 5 CYCLES
     Dates: start: 201705
  3. RITUXIMAB;VORHYALURONIDASE ALFA [Suspect]
     Active Substance: HYALURONIDASE (HUMAN RECOMBINANT)\RITUXIMAB
     Indication: B-CELL LYMPHOMA
     Dosage: EVERY 2 MONTHS
     Route: 058
     Dates: start: 201805
  4. DOXORUBICIN [Suspect]
     Active Substance: DOXORUBICIN
     Indication: B-CELL LYMPHOMA
     Dosage: 50 MG/M2 (R-CHOP REGIMEN), EVERY 21 DAYS
     Route: 065
     Dates: start: 201606, end: 201610
  5. RITUXIMAB;VORHYALURONIDASE ALFA [Suspect]
     Active Substance: HYALURONIDASE (HUMAN RECOMBINANT)\RITUXIMAB
     Dosage: EVERY 2 MONTHS
     Route: 058
  6. CYCLOPHOSPHAMIDE. [Suspect]
     Active Substance: CYCLOPHOSPHAMIDE
     Indication: B-CELL LYMPHOMA
     Dosage: 750 MG/M2 (R-CHOP REGIMEN), EVERY 21 DAYS
     Route: 065
     Dates: start: 201606, end: 201610
  7. BICALUTAMIDE. [Concomitant]
     Active Substance: BICALUTAMIDE
     Indication: ANDROGEN THERAPY
     Dosage: 150 MG, DAILY
     Route: 065
     Dates: start: 201607
  8. VINCRISTINE [Suspect]
     Active Substance: VINCRISTINE
     Indication: B-CELL LYMPHOMA
     Dosage: 1.4 MG/M2 (R-CHOP REGIMEN), EVERY 21 DAYS
     Route: 065
     Dates: start: 201606, end: 201610
  9. RITUXIMAB (UNKNOWN) [Suspect]
     Active Substance: RITUXIMAB
     Dosage: UNK
     Dates: start: 201805
  10. PREDNISOLONE. [Suspect]
     Active Substance: PREDNISOLONE
     Indication: B-CELL LYMPHOMA
     Dosage: 40 MG/M2 (R-CHOP REGIMEN) EVERY 21 DAYS
     Route: 065
     Dates: start: 201606, end: 201610
  11. RITUXIMAB (UNKNOWN) [Suspect]
     Active Substance: RITUXIMAB
     Indication: B-CELL LYMPHOMA
     Dosage: 375 MG/M2 (R-CHOP REGIMEN), EVERY 21 DAYS
     Route: 042
     Dates: start: 201606, end: 201610
  12. TRIPTORELIN [Concomitant]
     Active Substance: TRIPTORELIN
     Indication: ANDROGEN THERAPY
     Dosage: 3.75 MG EVERY 28 DAYS
     Route: 065
     Dates: start: 201607

REACTIONS (9)
  - Diarrhoea [Recovered/Resolved]
  - Erectile dysfunction [Unknown]
  - Colitis ulcerative [Recovered/Resolved]
  - Anaemia [Unknown]
  - Breast swelling [Unknown]
  - Product use issue [Unknown]
  - Asthenia [Unknown]
  - Fatigue [Unknown]
  - Neutropenia [Unknown]

NARRATIVE: CASE EVENT DATE: 201802
